FAERS Safety Report 9422422 (Version 1)
Quarter: 2013Q3

REPORT INFORMATION
  Report Type: Spontaneous
  Country: US (occurrence: None)
  Receive Date: 20130725
  Receipt Date: 20130725
  Transmission Date: 20140515
  Serious: Yes (Hospitalization)
  Sender: FDA-Public Use
  Company Number: None

PATIENT
  Age: 49 Year
  Sex: Male
  Weight: 125 kg

DRUGS (2)
  1. METHOTREXATE [Suspect]
     Dosage: DAY 1
  2. RITUXAN [Suspect]
     Dosage: DAY3

REACTIONS (2)
  - Colitis [None]
  - Abdominal pain [None]
